FAERS Safety Report 9426949 (Version 1)
Quarter: 2013Q3

REPORT INFORMATION
  Report Type: Spontaneous
  Country: GB (occurrence: GB)
  Receive Date: 20130730
  Receipt Date: 20130730
  Transmission Date: 20140515
  Serious: Yes (Congenital Anomaly)
  Sender: FDA-Public Use
  Company Number: GB-ASTRAZENECA-2013SE55603

PATIENT
  Age: 0 Week
  Sex: 0

DRUGS (9)
  1. OMEPRAZOLE [Suspect]
     Route: 064
  2. DIAZEPAM [Suspect]
     Route: 064
  3. DIAZEPAM [Suspect]
     Route: 064
  4. OLANZAPINE [Suspect]
     Indication: SCHIZOPHRENIA
     Route: 064
  5. PREGABALIN [Suspect]
     Indication: PAIN IN EXTREMITY
     Route: 064
  6. PREGABALIN [Suspect]
     Indication: PAIN IN EXTREMITY
     Route: 064
  7. SUBUTEX [Suspect]
     Route: 064
  8. ZOPICLONE [Suspect]
     Route: 064
  9. ZOPICLONE [Suspect]
     Route: 064

REACTIONS (7)
  - Foetal exposure during pregnancy [Unknown]
  - Limb reduction defect [Not Recovered/Not Resolved]
  - Congenital scoliosis [Not Recovered/Not Resolved]
  - Single functional kidney [Not Recovered/Not Resolved]
  - Foetal malformation [Not Recovered/Not Resolved]
  - Oesophageal atresia [Unknown]
  - Cardiac disorder [Unknown]
